FAERS Safety Report 9617470 (Version 1)
Quarter: 2013Q4

REPORT INFORMATION
  Report Type: Spontaneous
  Country: GR (occurrence: GR)
  Receive Date: 20131011
  Receipt Date: 20131011
  Transmission Date: 20140711
  Serious: Yes (Death, Other)
  Sender: FDA-Public Use
  Company Number: GR-CELGENEUS-066-50794-13100076

PATIENT
  Sex: 0

DRUGS (2)
  1. VIDAZA [Suspect]
     Indication: ACUTE MYELOID LEUKAEMIA
     Dosage: 75 MILLIGRAM/SQ. METER
     Route: 050
  2. BLOOD TRANSFUSION [Concomitant]
     Indication: ACUTE MYELOID LEUKAEMIA
     Route: 050

REACTIONS (5)
  - Second primary malignancy [Unknown]
  - Acute myeloid leukaemia [Fatal]
  - General physical health deterioration [Unknown]
  - Leukaemia recurrent [Unknown]
  - No therapeutic response [Unknown]
